FAERS Safety Report 20732647 (Version 1)
Quarter: 2022Q2

REPORT INFORMATION
  Report Type: Spontaneous
  Country: IT (occurrence: IT)
  Receive Date: 20220420
  Receipt Date: 20220420
  Transmission Date: 20220721
  Serious: Yes (Hospitalization)
  Sender: FDA-Public Use
  Company Number: IT-NOVARTISPH-NVSC2022IT086980

PATIENT
  Age: 72 Year
  Sex: Male

DRUGS (1)
  1. OLMESARTAN MEDOXOMIL [Suspect]
     Active Substance: OLMESARTAN MEDOXOMIL
     Indication: Product used for unknown indication
     Dosage: UNK UNK, UNKNOWN
     Route: 065

REACTIONS (5)
  - Intestinal intraepithelial lymphocytes increased [Recovering/Resolving]
  - Malabsorption [Recovering/Resolving]
  - Gastric polyps [Recovering/Resolving]
  - Intestinal villi atrophy [Recovering/Resolving]
  - Gastrointestinal disorder [Recovering/Resolving]
